FAERS Safety Report 7929930-0 (Version None)
Quarter: 2011Q4

REPORT INFORMATION
  Report Type: 
  Country: None (occurrence: None)
  Receive Date: 20111118
  Receipt Date: 20111118
  Transmission Date: 20120403
  Serious: Yes (Other)
  Sender: FDA-Public Use
  Company Number: None

PATIENT
  Sex: Male
  Weight: 108.8633 kg

DRUGS (1)
  1. DONEPEZIL HCL [Suspect]
     Indication: MEMORY IMPAIRMENT
     Dosage: 1 A DAY
     Dates: start: 20110908, end: 20110910

REACTIONS (4)
  - DIZZINESS [None]
  - HEADACHE [None]
  - DEPRESSION [None]
  - TINNITUS [None]
